FAERS Safety Report 7971740-2 (Version None)
Quarter: 2011Q4

REPORT INFORMATION
  Report Type: 
  Country: None (occurrence: None)
  Receive Date: 20111212
  Receipt Date: 20111125
  Transmission Date: 20120403
  Serious: Yes (Other)
  Sender: FDA-Public Use
  Company Number: JP-SANOFI-AVENTIS-2011SA080256

PATIENT
  Age: 50 Year
  Sex: Male

DRUGS (5)
  1. VASOPRESSIN TANNATE [Concomitant]
  2. DDAVP [Suspect]
     Route: 045
  3. DDAVP [Suspect]
     Indication: CEREBROVASCULAR DISORDER
     Route: 045
  4. DDAVP [Suspect]
     Route: 045
  5. DDAVP [Suspect]
     Route: 045

REACTIONS (1)
  - PANCYTOPENIA [None]
